FAERS Safety Report 15555402 (Version 1)
Quarter: 2018Q4

REPORT INFORMATION
  Report Type: Spontaneous
  Country: US (occurrence: US)
  Receive Date: 20181023
  Receipt Date: 20181023
  Transmission Date: 20190205
  Serious: Yes (Hospitalization)
  Sender: FDA-Public Use
  Company Number: None

PATIENT
  Age: 65 Year
  Sex: Female
  Weight: 73.3 kg

DRUGS (1)
  1. IBRANCE [Suspect]
     Active Substance: PALBOCICLIB
     Indication: BREAST CANCER METASTATIC
     Dosage: ?          OTHER FREQUENCY:DAILY ON 1-21 Q28D;?
     Route: 048
     Dates: start: 201802, end: 20180703

REACTIONS (13)
  - Lethargy [None]
  - Renal tubular necrosis [None]
  - Thrombocytopenia [None]
  - Coagulopathy [None]
  - Pulseless electrical activity [None]
  - Septic shock [None]
  - Liver function test increased [None]
  - Acute hepatic failure [None]
  - Lactic acidosis [None]
  - Hypoglycaemia [None]
  - Cardio-respiratory arrest [None]
  - Mental status changes [None]
  - Constipation [None]

NARRATIVE: CASE EVENT DATE: 20180711
